FAERS Safety Report 10255357 (Version 3)
Quarter: 2014Q3

REPORT INFORMATION
  Report Type: Spontaneous
  Country: MX (occurrence: None)
  Receive Date: 20140620
  Receipt Date: 20140728
  Transmission Date: 20150326
  Serious: Yes (Other)
  Sender: FDA-Public Use
  Company Number: 2014MX010480

PATIENT
  Age: 11 Year
  Sex: Female
  Weight: 34.7 kg

DRUGS (3)
  1. METHOTREXATE (METHOTREXATE) [Concomitant]
     Active Substance: METHOTREXATE
  2. CITARABIN (CYTARABINE) SOLUTION (EXCEPT SYRUP) [Concomitant]
  3. ONICIT [Suspect]
     Active Substance: PALONOSETRON HYDROCHLORIDE
     Indication: PROPHYLAXIS OF NAUSEA AND VOMITING
     Route: 042
     Dates: start: 201311, end: 201311

REACTIONS (5)
  - Tachycardia [None]
  - Off label use [None]
  - Hyperhidrosis [None]
  - Hypersensitivity [None]
  - Dyspnoea [None]

NARRATIVE: CASE EVENT DATE: 20140605
